FAERS Safety Report 19096823 (Version 1)
Quarter: 2021Q2

REPORT INFORMATION
  Report Type: Spontaneous
  Country: PR (occurrence: PR)
  Receive Date: 20210405
  Receipt Date: 20210405
  Transmission Date: 20210717
  Serious: No
  Sender: FDA-Public Use
  Company Number: None

PATIENT
  Sex: Female

DRUGS (3)
  1. COVID?19 VACCINE NOS. [Suspect]
     Active Substance: COVID-19 VACCINE NOS
  2. TECFIDERA [Suspect]
     Active Substance: DIMETHYL FUMARATE
  3. KESIMPTA [Suspect]
     Active Substance: OFATUMUMAB

REACTIONS (4)
  - Pain in extremity [None]
  - Paralysis [None]
  - Influenza like illness [None]
  - COVID-19 immunisation [None]
